FAERS Safety Report 17140595 (Version 1)
Quarter: 2019Q4

REPORT INFORMATION
  Report Type: Spontaneous
  Country: AT (occurrence: AT)
  Receive Date: 20191211
  Receipt Date: 20191211
  Transmission Date: 20200122
  Serious: Yes (Other)
  Sender: FDA-Public Use
  Company Number: NVSC2019AT059580

PATIENT

DRUGS (4)
  1. AZITHROMYCIN ANHYDROUS. [Suspect]
     Active Substance: AZITHROMYCIN ANHYDROUS
     Indication: DIARRHOEA HAEMORRHAGIC
     Dosage: 500 MG, QD (FOR 3 DAYS)
     Route: 065
     Dates: start: 201811, end: 2018
  2. RIFAXIMIN. [Suspect]
     Active Substance: RIFAXIMIN
     Indication: DIARRHOEA HAEMORRHAGIC
     Route: 065
  3. AZITHROMYCIN ANHYDROUS. [Suspect]
     Active Substance: AZITHROMYCIN ANHYDROUS
     Indication: DIARRHOEA INFECTIOUS
     Route: 065
  4. RIFAXIMIN. [Suspect]
     Active Substance: RIFAXIMIN
     Indication: INFECTION
     Dosage: 600 MG, QD (200 MG, 3X/DAY (FOR 10DAYS)
     Route: 065
     Dates: start: 201811, end: 2018

REACTIONS (2)
  - Drug ineffective for unapproved indication [Unknown]
  - Off label use [Unknown]

NARRATIVE: CASE EVENT DATE: 2018
